FAERS Safety Report 5394813-X (Version None)
Quarter: 2007Q3

REPORT INFORMATION
  Report Type: 
  Country: None (occurrence: None)
  Receive Date: 20070720
  Receipt Date: 20070709
  Transmission Date: 20080115
  Serious: Yes (Disabling)
  Sender: FDA-Public Use
  Company Number: PERIO-2007-0009

PATIENT
  Age: 56 Year
  Sex: Male

DRUGS (3)
  1. PERIOSTAT [Suspect]
     Indication: DENTAL TREATMENT
     Dosage: 20 MG, BID
     Dates: start: 20040325
  2. DOXYCYCLINE [Suspect]
     Indication: DENTAL TREATMENT
     Dosage: 20 MG, BID
  3. ASPIRIN [Concomitant]

REACTIONS (3)
  - PHARMACEUTICAL PRODUCT COMPLAINT [None]
  - VISION BLURRED [None]
  - VISUAL ACUITY REDUCED [None]
